FAERS Safety Report 6024164-1 (Version None)
Quarter: 2008Q4

REPORT INFORMATION
  Report Type: 
  Country: None (occurrence: None)
  Receive Date: 20081224
  Receipt Date: 20081211
  Transmission Date: 20090506
  Serious: Yes (Hospitalization)
  Sender: FDA-Public Use
  Company Number: KV200801102

PATIENT
  Age: 78 Year
  Sex: Female
  Weight: 89.3 kg

DRUGS (4)
  1. ISOSORBIDE DINITRATE [Suspect]
     Indication: ATRIAL FIBRILLATION
     Dosage: 60 MG,QD,ORAL
     Route: 048
     Dates: start: 20060301, end: 20081101
  2. LOPRESSOR [Concomitant]
  3. LASIX [Concomitant]
  4. EFFEXOR/01233801/ (VENLAFAXINE) [Concomitant]

REACTIONS (4)
  - BACK PAIN [None]
  - DYSPNOEA [None]
  - PRODUCT QUALITY ISSUE [None]
  - WEIGHT DECREASED [None]
